FAERS Safety Report 7360932-1 (Version None)
Quarter: 2011Q1

REPORT INFORMATION
  Report Type: 
  Country: None (occurrence: None)
  Receive Date: 20110318
  Receipt Date: 20110316
  Transmission Date: 20110831
  Serious: Yes (Other)
  Sender: FDA-Public Use
  Company Number: DE-SANOFI-AVENTIS-2011SA011216

PATIENT
  Age: 77 Year
  Sex: Male

DRUGS (13)
  1. ALL OTHER THERAPEUTIC PRODUCTS [Concomitant]
     Route: 065
  2. ENALAPRIL [Concomitant]
     Route: 048
  3. ALLOPURINOL [Concomitant]
     Indication: HYPERURICAEMIA
     Route: 048
  4. ARAVA [Suspect]
     Indication: RHEUMATOID ARTHRITIS
     Route: 048
     Dates: start: 20101101, end: 20110215
  5. BISOPROLOL [Concomitant]
     Route: 048
  6. PREDNISOLONE [Concomitant]
     Route: 048
     Dates: end: 20101001
  7. TAMSULOSIN HCL [Concomitant]
     Route: 048
  8. TORASEMIDE [Concomitant]
     Route: 048
  9. COLCHICINE [Concomitant]
     Indication: RHEUMATOID ARTHRITIS
     Route: 065
     Dates: end: 20101001
  10. ASPIRIN [Concomitant]
     Route: 065
  11. SIMVASTATIN [Concomitant]
     Route: 048
  12. BUDESONIDE [Concomitant]
     Dosage: 2 HUBS DAILY
     Route: 065
  13. PREDNISOLONE [Concomitant]
     Indication: RHEUMATOID ARTHRITIS
     Route: 048
     Dates: start: 20101101

REACTIONS (1)
  - SYNCOPE [None]
